FAERS Safety Report 19470687 (Version 1)
Quarter: 2021Q2

REPORT INFORMATION
  Report Type: Spontaneous
  Country: DK (occurrence: DK)
  Receive Date: 20210629
  Receipt Date: 20210629
  Transmission Date: 20210717
  Serious: Yes (Death)
  Sender: FDA-Public Use
  Company Number: DK-TEVA-2021-DK-1925866

PATIENT
  Age: 81 Year
  Sex: Female
  Weight: 48 kg

DRUGS (4)
  1. PARACETAMOL [Concomitant]
     Active Substance: ACETAMINOPHEN
     Indication: PAIN
     Dates: start: 20140423
  2. XARELTO [Suspect]
     Active Substance: RIVAROXABAN
     Indication: THROMBOSIS PROPHYLAXIS
     Dosage: STRENGTH: 20 MG
     Route: 048
     Dates: start: 20201223
  3. GEMADOL RETARD [Suspect]
     Active Substance: TRAMADOL HYDROCHLORIDE
     Indication: PAIN
     Dosage: DOSAGE: 1 CAPSULE MORNING AND EVENING. STRENGTH: 50 MG
     Route: 048
     Dates: start: 20210203
  4. ESCITALOPRAM ^TEVA^ [Suspect]
     Active Substance: ESCITALOPRAM OXALATE
     Indication: ANXIETY
     Dosage: STRENGTH: 5 MG
     Route: 048
     Dates: start: 20210106

REACTIONS (1)
  - Brain stem haemorrhage [Fatal]

NARRATIVE: CASE EVENT DATE: 20210314
